FAERS Safety Report 5336498-4 (Version None)
Quarter: 2007Q2

REPORT INFORMATION
  Report Type: 
  Country: None (occurrence: None)
  Receive Date: 20070529
  Receipt Date: 20070521
  Transmission Date: 20071010
  Serious: Yes (Hospitalization, Other)
  Sender: FDA-Public Use
  Company Number: US-ELI_LILLY_AND_COMPANY-US200705005339

PATIENT
  Age: 15 Year
  Sex: Female

DRUGS (7)
  1. ZYPREXA [Suspect]
     Dosage: 15 MG, 2/D
     Dates: start: 20040101
  2. PROMETRIUM [Concomitant]
  3. BENZATROPINE [Concomitant]
  4. LAMICTAL [Concomitant]
     Dosage: 150 MG, UNK
  5. ABILIFY [Concomitant]
  6. TENEX [Concomitant]
  7. ZOLOFT [Concomitant]

REACTIONS (6)
  - HOSTILITY [None]
  - LEGAL PROBLEM [None]
  - PHYSICAL ASSAULT [None]
  - PRESCRIBED OVERDOSE [None]
  - SELF MUTILATION [None]
  - WEIGHT INCREASED [None]
